FAERS Safety Report 17875009 (Version 2)
Quarter: 2020Q2

REPORT INFORMATION
  Report Type: Spontaneous
  Country: US (occurrence: US)
  Receive Date: 20200609
  Receipt Date: 20200610
  Transmission Date: 20200714
  Serious: No
  Sender: FDA-Public Use
  Company Number: US-PFIZER INC-2020223618

PATIENT
  Age: 41 Year
  Sex: Male
  Weight: 88 kg

DRUGS (2)
  1. LYRICA [Suspect]
     Active Substance: PREGABALIN
     Indication: NEURALGIA
  2. LYRICA [Suspect]
     Active Substance: PREGABALIN
     Indication: SPINAL CORD INJURY
     Dosage: 225 MG, 2X/DAY [75 MG 3 CAPSULE TWO TIMES DAILY]
     Route: 048
     Dates: start: 20200518

REACTIONS (1)
  - Therapeutic product effect incomplete [Unknown]
